FAERS Safety Report 9553640 (Version 1)
Quarter: 2013Q2

REPORT INFORMATION
  Report Type: Spontaneous
  Country: US (occurrence: None)
  Receive Date: 20130419
  Receipt Date: 20130419
  Transmission Date: 20140414
  Serious: Yes (Other)
  Sender: FDA-Public Use
  Company Number: FK201200708

PATIENT
  Age: 34 Year
  Sex: Female

DRUGS (5)
  1. HEPARIN SODIUM [Suspect]
     Indication: THROMBOSIS
  2. HEPARIN [Suspect]
     Indication: THROMBOSIS
  3. ENOXAPARIN [Concomitant]
  4. PRENATAL VITAMIN (PRENATAL VITAMINS) [Concomitant]
  5. BABY ASPIRIN (ACETYLSALICYLIC ACID) [Concomitant]

REACTIONS (1)
  - Hypersensitivity [None]
